FAERS Safety Report 9246925 (Version 4)
Quarter: 2013Q2

REPORT INFORMATION
  Report Type: Spontaneous
  Country: US (occurrence: US)
  Receive Date: 20130422
  Receipt Date: 20130515
  Transmission Date: 20140414
  Serious: No
  Sender: FDA-Public Use
  Company Number: US-VERTEX PHARMACEUTICALS INC.-2013-005001

PATIENT
  Age: 52 Year
  Sex: Male
  Weight: 85 kg

DRUGS (4)
  1. INCIVEK [Suspect]
     Indication: HEPATITIS C
     Dosage: 750 MG, TID
     Route: 048
     Dates: start: 20130408
  2. PEGINTERFERON ALFA-2A [Suspect]
     Indication: HEPATITIS C
     Dosage: 180 ?G, QW
     Route: 058
     Dates: start: 20130408
  3. RIBASPHERE [Suspect]
     Indication: HEPATITIS C
     Dosage: 600 MG AM, 400 MG PM,
     Route: 048
     Dates: start: 20130408
  4. XANAX [Concomitant]
     Dosage: UNK
     Route: 048

REACTIONS (7)
  - Folliculitis [Recovered/Resolved]
  - Contusion [Recovered/Resolved]
  - Weight decreased [Not Recovered/Not Resolved]
  - Rash erythematous [Recovered/Resolved]
  - Blister [Unknown]
  - Diarrhoea [Recovered/Resolved]
  - Pruritus [Unknown]
